FAERS Safety Report 24354761 (Version 1)
Quarter: 2024Q3

REPORT INFORMATION
  Report Type: Spontaneous
  Country: FR (occurrence: FR)
  Receive Date: 20240923
  Receipt Date: 20240923
  Transmission Date: 20241017
  Serious: Yes (Hospitalization)
  Sender: ABBVIE
  Company Number: None

PATIENT
  Age: 76 Year
  Sex: Female

DRUGS (4)
  1. VENETOCLAX [Suspect]
     Active Substance: VENETOCLAX
     Indication: Myelodysplastic syndrome
     Dosage: TIME INTERVAL: 1 CYCLICAL: LAST ADMIN DATE: 2024
     Route: 048
     Dates: start: 20240521
  2. VENETOCLAX [Suspect]
     Active Substance: VENETOCLAX
     Indication: Myelodysplastic syndrome
     Dosage: TIME INTERVAL: 1 CYCLICAL
     Route: 048
     Dates: start: 2024
  3. VIDAZA [Suspect]
     Active Substance: AZACITIDINE
     Indication: Myelodysplastic syndrome
     Dosage: TIME INTERVAL: 1 CYCLICAL
     Route: 042
     Dates: start: 20240521
  4. LEVOTHYROXINE [Concomitant]
     Active Substance: LEVOTHYROXINE\LEVOTHYROXINE SODIUM
     Indication: Product used for unknown indication
     Route: 065

REACTIONS (2)
  - Bone marrow failure [Recovered/Resolved]
  - Candida pneumonia [Recovering/Resolving]

NARRATIVE: CASE EVENT DATE: 20240501
